FAERS Safety Report 7627291-8 (Version None)
Quarter: 2011Q3

REPORT INFORMATION
  Report Type: 
  Country: None (occurrence: None)
  Receive Date: 20110721
  Receipt Date: 20110713
  Transmission Date: 20111222
  Serious: Yes (Other)
  Sender: FDA-Public Use
  Company Number: PHEH2007US07738

PATIENT
  Sex: Female

DRUGS (24)
  1. AVASTIN [Concomitant]
     Indication: NON-SMALL CELL LUNG CANCER
     Dates: start: 20030801, end: 20040901
  2. PROMETHAZINE [Concomitant]
     Dosage: 12.5 MG,
     Route: 042
     Dates: start: 20061211, end: 20061211
  3. TARCEVA [Concomitant]
     Indication: NON-SMALL CELL LUNG CANCER
     Dates: start: 20050901
  4. NAVELBINE [Concomitant]
     Indication: NON-SMALL CELL LUNG CANCER
     Dates: start: 20030801, end: 20040901
  5. SUBLIMAZE PRESERVATIVE FREE [Concomitant]
     Dosage: 1 MG, UNK
     Dates: start: 20070205, end: 20070205
  6. LIDOCAINE [Concomitant]
     Dosage: 5.4 ML 2%
     Dates: start: 20070205, end: 20070205
  7. LORTAB [Concomitant]
  8. PREVACID [Concomitant]
     Dosage: 30 MG, DAILY
     Route: 048
  9. VERSED [Concomitant]
     Dosage: 2 MG, UNK
     Dates: start: 20070205, end: 20070205
  10. LIDOCAINE [Concomitant]
     Dosage: 5.4 ML 2%
     Dates: start: 20061211, end: 20061211
  11. SUBLIMAZE PRESERVATIVE FREE [Concomitant]
     Dosage: 1 ML,
     Dates: start: 20061211, end: 20061211
  12. PROMETHAZINE [Concomitant]
     Dosage: 12.5 MG, UNK
     Route: 042
     Dates: start: 20070205, end: 20070205
  13. EFFEXOR [Concomitant]
     Dosage: 150 MG,DAILY
     Route: 048
  14. ZOMETA [Suspect]
     Indication: HYPERCALCAEMIA OF MALIGNANCY
     Dosage: 4 MG MONTLY
     Dates: start: 20031125, end: 20070323
  15. CARBOPLATIN [Concomitant]
     Indication: NON-SMALL CELL LUNG CANCER
     Dates: start: 20030801, end: 20040901
  16. ACTONEL [Suspect]
  17. DECADRON [Concomitant]
  18. TAXOL [Concomitant]
     Indication: NON-SMALL CELL LUNG CANCER
     Dates: start: 20051001
  19. CISPLATIN [Concomitant]
     Indication: NON-SMALL CELL LUNG CANCER
     Dates: start: 20060501, end: 20061101
  20. TAXOTERE [Concomitant]
     Indication: NON-SMALL CELL LUNG CANCER
     Dates: start: 20050801, end: 20050901
  21. VERSED [Concomitant]
     Dosage: 2 MG,
     Dates: start: 20061211, end: 20061211
  22. PROPOFOL [Concomitant]
     Dosage: 50 MG,
     Dates: start: 20061211, end: 20061211
  23. PROPOFOL [Concomitant]
     Dosage: 50 MG, UNK
     Dates: start: 20070205, end: 20070205
  24. TYLENOL-500 [Concomitant]

REACTIONS (31)
  - DISABILITY [None]
  - RECTAL HAEMORRHAGE [None]
  - INJURY [None]
  - OSTEOPENIA [None]
  - DEPRESSION [None]
  - EMPHYSEMA [None]
  - ERYTHEMA [None]
  - OSTEITIS [None]
  - BONE DISORDER [None]
  - DYSPHAGIA [None]
  - DIZZINESS [None]
  - METASTASES TO MENINGES [None]
  - HYPERTENSION [None]
  - RENAL FAILURE [None]
  - ABDOMINAL PAIN [None]
  - TINNITUS [None]
  - ORAL DISORDER [None]
  - PAIN [None]
  - BACK PAIN [None]
  - SKIN ULCER [None]
  - GASTROOESOPHAGEAL REFLUX DISEASE [None]
  - RESTLESS LEGS SYNDROME [None]
  - OSTEONECROSIS OF JAW [None]
  - MUSCULOSKELETAL PAIN [None]
  - SWELLING [None]
  - ANXIETY [None]
  - ANHEDONIA [None]
  - CONSTIPATION [None]
  - EPISTAXIS [None]
  - AMNESIA [None]
  - HYPOKALAEMIA [None]
